FAERS Safety Report 4478872-4 (Version None)
Quarter: 2004Q4

REPORT INFORMATION
  Report Type: 
  Country: None (occurrence: None)
  Receive Date: 20041014
  Receipt Date: 20040927
  Transmission Date: 20050328
  Serious: Yes (Hospitalization)
  Sender: FDA-Public Use
  Company Number: MEDI-0002165

PATIENT
  Age: 4 Month
  Sex: Female

DRUGS (6)
  1. SYNAGIS [Suspect]
     Indication: ANTIVIRAL PROPHYLAXIS
     Dosage: 50 MG, 1 IN 30 D, INTRAMUSCULAR : 50 MG,  100 MG, 100 MG, 1 IN 30 D, INTRAMUSCULAR
     Route: 030
     Dates: start: 20031227, end: 20031227
  2. SYNAGIS [Suspect]
     Indication: ANTIVIRAL PROPHYLAXIS
     Dosage: 50 MG, 1 IN 30 D, INTRAMUSCULAR : 50 MG,  100 MG, 100 MG, 1 IN 30 D, INTRAMUSCULAR
     Route: 030
     Dates: start: 20040422, end: 20040422
  3. SYNAGIS [Suspect]
     Indication: ANTIVIRAL PROPHYLAXIS
     Dosage: 50 MG, 1 IN 30 D, INTRAMUSCULAR : 50 MG,  100 MG, 100 MG, 1 IN 30 D, INTRAMUSCULAR
     Route: 030
     Dates: start: 20040225
  4. SYNAGIS [Suspect]
     Indication: ANTIVIRAL PROPHYLAXIS
     Dosage: 50 MG, 1 IN 30 D, INTRAMUSCULAR : 50 MG,  100 MG, 100 MG, 1 IN 30 D, INTRAMUSCULAR
     Route: 030
     Dates: start: 20040325
  5. FERRIC PYROPHOSPHATE [Concomitant]
  6. CALCITRIOL [Concomitant]

REACTIONS (3)
  - HERNIA [None]
  - ILEUS [None]
  - UPPER RESPIRATORY TRACT INFLAMMATION [None]
